FAERS Safety Report 4900595-5 (Version None)
Quarter: 2006Q1

REPORT INFORMATION
  Report Type: 
  Country: None (occurrence: None)
  Receive Date: 20060201
  Receipt Date: 20060120
  Transmission Date: 20060701
  Serious: Yes (Death, Hospitalization, Other)
  Sender: FDA-Public Use
  Company Number: KII-2006-0020885

PATIENT
  Age: 57 Year
  Sex: Female

DRUGS (3)
  1. MORPHINE SULFATE [Suspect]
     Dosage: ORAL
     Route: 048
  2. BENZODIAZEPINE DERIVATES [Suspect]
  3. AMPHETAMINE SULFATE [Suspect]

REACTIONS (15)
  - ALANINE AMINOTRANSFERASE INCREASED [None]
  - AREFLEXIA [None]
  - ASPARTATE AMINOTRANSFERASE INCREASED [None]
  - BODY TEMPERATURE INCREASED [None]
  - BRAIN DAMAGE [None]
  - COMA [None]
  - ELECTROCARDIOGRAM ST SEGMENT ABNORMAL [None]
  - GRIMACING [None]
  - LOSS OF CONSCIOUSNESS [None]
  - MULTIPLE DRUG OVERDOSE [None]
  - PULMONARY EMBOLISM [None]
  - PUPILLARY REFLEX IMPAIRED [None]
  - RESPIRATORY ARREST [None]
  - RHABDOMYOLYSIS [None]
  - THERAPY NON-RESPONDER [None]
